FAERS Safety Report 4767975-2 (Version None)
Quarter: 2005Q3

REPORT INFORMATION
  Report Type: 
  Country: None (occurrence: None)
  Receive Date: 20050913
  Receipt Date: 20050826
  Transmission Date: 20060218
  Serious: Yes (Hospitalization)
  Sender: FDA-Public Use
  Company Number: 2005-132214-NL

PATIENT
  Age: 56 Year
  Sex: Male

DRUGS (14)
  1. DEXAMETHASONE [Suspect]
     Indication: MULTIPLE MYELOMA
     Dosage: 40 MG DAILY ORAL, 40 MG/DAY X 4/CYCLE X1
     Route: 048
     Dates: start: 20011202
  2. GENASENSE [Suspect]
     Indication: MULTIPLE MYELOMA
     Dosage: 420 MG DAILY INTRAVENOUS (NOS), 420 MG/DAY X 7/CYCLE X1
     Route: 042
     Dates: start: 20011129
  3. LISINOPRIL [Concomitant]
  4. FUROSEMIDE [Concomitant]
  5. SPIRONOLACTONE [Concomitant]
  6. CARVEDILOL [Concomitant]
  7. METOCLOPRAMIDE [Concomitant]
  8. PROCHLORPRERAZINE [Concomitant]
  9. LANSOPRAZOLE [Concomitant]
  10. SULFAMETHOXAZOLE + TRIMETHOPRIM [Concomitant]
  11. HYDROMORPHONE [Concomitant]
  12. FAMOTIDINE [Concomitant]
  13. ZOLPIDEM [Concomitant]
  14. DOCUSATE SODIUM [Concomitant]

REACTIONS (15)
  - ABDOMINAL PAIN [None]
  - ABDOMINAL TENDERNESS [None]
  - ANAEMIA [None]
  - BLOOD PRESSURE DIASTOLIC INCREASED [None]
  - BLOOD PRESSURE SYSTOLIC INCREASED [None]
  - BODY TEMPERATURE DECREASED [None]
  - BREATH SOUNDS ABNORMAL [None]
  - CHEST PAIN [None]
  - CONSTIPATION [None]
  - DEHYDRATION [None]
  - DISEASE RECURRENCE [None]
  - NAUSEA [None]
  - OESOPHAGEAL CANDIDIASIS [None]
  - OROPHARYNGEAL CANDIDIASIS [None]
  - RADIATION OESOPHAGITIS [None]
